FAERS Safety Report 7996251-X (Version None)
Quarter: 2011Q4

REPORT INFORMATION
  Report Type: 
  Country: None (occurrence: None)
  Receive Date: 20111220
  Receipt Date: 20111212
  Transmission Date: 20120403
  Serious: Yes (Hospitalization)
  Sender: FDA-Public Use
  Company Number: CA-ABBOTT-11P-028-0882356-00

PATIENT
  Sex: Female

DRUGS (10)
  1. HUMIRA [Suspect]
     Indication: CROHN'S DISEASE
     Route: 058
     Dates: start: 20080601
  2. METHOTREXATE [Concomitant]
     Indication: CROHN'S DISEASE
     Dates: start: 20080616
  3. ATIVAN [Concomitant]
     Indication: ANXIETY
  4. EFFEXOR [Concomitant]
     Indication: PANIC ATTACK
     Route: 048
  5. TRAMADOL HCL [Concomitant]
     Indication: PAIN
     Route: 048
  6. ATIVAN [Concomitant]
     Indication: INSOMNIA
  7. LYRICA [Concomitant]
     Indication: PAIN
  8. RANITIDINE [Concomitant]
     Indication: GASTRITIS PROPHYLAXIS
  9. OXYCET [Concomitant]
     Indication: PAIN
     Dosage: 6-8 TABLETS PER DAY
     Route: 048
  10. ATIVAN [Concomitant]
     Indication: PANIC ATTACK
     Route: 048

REACTIONS (1)
  - ENDOMETRIOSIS [None]
